FAERS Safety Report 4979355-5 (Version None)
Quarter: 2006Q2

REPORT INFORMATION
  Report Type: 
  Country: None (occurrence: None)
  Receive Date: 20060421
  Receipt Date: 20050629
  Transmission Date: 20061013
  Serious: Yes (Hospitalization, Disabling)
  Sender: FDA-Public Use
  Company Number: US-MERCK-0506USA04378

PATIENT
  Age: 59 Year
  Sex: Male
  Weight: 70 kg

DRUGS (5)
  1. VIOXX [Suspect]
     Indication: NECK PAIN
     Route: 065
     Dates: start: 20030401, end: 20040901
  2. VIOXX [Suspect]
     Route: 048
     Dates: start: 19990901, end: 20030401
  3. VIOXX [Suspect]
     Indication: BACK PAIN
     Route: 065
     Dates: start: 20030401, end: 20040901
  4. VIOXX [Suspect]
     Route: 048
     Dates: start: 19990901, end: 20030401
  5. BEXTRA [Concomitant]
     Route: 065

REACTIONS (7)
  - BACK INJURY [None]
  - CHEST PAIN [None]
  - LUMBAR RADICULOPATHY [None]
  - PRESCRIBED OVERDOSE [None]
  - RENAL DISORDER [None]
  - RENAL PAIN [None]
  - SHOULDER PAIN [None]
